FAERS Safety Report 14122440 (Version 2)
Quarter: 2017Q4

REPORT INFORMATION
  Report Type: Spontaneous
  Country: JP (occurrence: JP)
  Receive Date: 20171024
  Receipt Date: 20171103
  Transmission Date: 20180321
  Serious: Yes (Other)
  Sender: FDA-Public Use
  Company Number: PHJP2017JP031664

PATIENT
  Age: 3 Month
  Sex: Male
  Weight: 4.1 kg

DRUGS (2)
  1. CARBAMAZEPINE. [Suspect]
     Active Substance: CARBAMAZEPINE
     Indication: INFANTILE APNOEA
     Dosage: 5 MG/KG, UNK
     Route: 048
  2. CARBAMAZEPINE. [Suspect]
     Active Substance: CARBAMAZEPINE
     Indication: LARYNGOSPASM
     Dosage: 10 MG/KG, UNK
     Route: 048

REACTIONS (3)
  - Therapy non-responder [Unknown]
  - Infantile apnoea [Recovering/Resolving]
  - Product use in unapproved indication [Unknown]
